FAERS Safety Report 5444186-9 (Version None)
Quarter: 2007Q3

REPORT INFORMATION
  Report Type: 
  Country: None (occurrence: None)
  Receive Date: 20070904
  Receipt Date: 20070904
  Transmission Date: 20080115
  Serious: Yes (Hospitalization)
  Sender: FDA-Public Use
  Company Number: None

PATIENT
  Age: 76 Year
  Sex: Female

DRUGS (9)
  1. ZYPREXA [Suspect]
     Indication: ANXIETY
     Dosage: 10 MG DAILY
     Dates: end: 20070302
  2. OXYCODONE CE [Concomitant]
  3. CLONAZEPAM [Concomitant]
  4. LORAZEPAM [Concomitant]
  5. MULTI-VITAMIN [Concomitant]
  6. ASPIRIN [Concomitant]
  7. PREMARIN [Concomitant]
  8. LYRICA [Concomitant]
  9. CALCIUM [Concomitant]

REACTIONS (1)
  - ASTHENIA [None]
